FAERS Safety Report 21089300 (Version 1)
Quarter: 2022Q3

REPORT INFORMATION
  Report Type: Spontaneous
  Country: US (occurrence: US)
  Receive Date: 20220715
  Receipt Date: 20220715
  Transmission Date: 20221027
  Serious: No
  Sender: FDA-Public Use
  Company Number: US-BRISTOL-MYERS SQUIBB COMPANY-2022-074825

PATIENT
  Age: 65 Year
  Sex: Male

DRUGS (1)
  1. REVLIMID [Suspect]
     Active Substance: LENALIDOMIDE
     Indication: Plasma cell myeloma
     Dosage: FREQ : ONE CAPSULE DAILY ON DAYS 1 THROUGH TO 21 AND 7 DAYS OFF.
     Route: 048

REACTIONS (3)
  - Full blood count decreased [Unknown]
  - Immune system disorder [Unknown]
  - Off label use [Unknown]
